FAERS Safety Report 17521308 (Version 1)
Quarter: 2020Q1

REPORT INFORMATION
  Report Type: Spontaneous
  Country: US (occurrence: US)
  Receive Date: 20200302
  Receipt Date: 20200302
  Transmission Date: 20200409
  Serious: Yes (Life-Threatening, Disabling, Other)
  Sender: FDA-Public Use
  Company Number: None

PATIENT
  Age: 64 Year
  Sex: Male
  Weight: 99.79 kg

DRUGS (7)
  1. PPD TUBERCULIN [Suspect]
     Active Substance: TUBERCULIN PURIFIED PROTEIN DERIVATIVE (MANTOUX)
     Indication: PRODUCT USED FOR UNKNOWN INDICATION
     Dosage: ?          OTHER ROUTE:INJECTION OF @ 3-4 C.C. DEEP IN MUSCLE U?
     Route: 030
     Dates: start: 20150807
  2. METOPROLOL TART 50 MG [Concomitant]
  3. CLARITIN [Concomitant]
     Active Substance: LORATADINE
  4. IBUPROFEN 600 MG [Concomitant]
     Active Substance: IBUPROFEN
  5. TRIAMPER/HCTZ 37.5-25 [Concomitant]
  6. OMEPRAZOLE 20 MG [Concomitant]
     Active Substance: OMEPRAZOLE
  7. ASPIRIN 81 MG CHW [Concomitant]

REACTIONS (7)
  - Dizziness [None]
  - Hyperhidrosis [None]
  - Dyspnoea [None]
  - Pain [None]
  - Loss of consciousness [None]
  - Wrong product administered [None]
  - Palpitations [None]
